FAERS Safety Report 20492076 (Version 1)
Quarter: 2022Q1

REPORT INFORMATION
  Report Type: Spontaneous
  Country: US (occurrence: US)
  Receive Date: 20220218
  Receipt Date: 20220218
  Transmission Date: 20220423
  Serious: Yes (Other)
  Sender: FDA-Public Use
  Company Number: US-NOVARTISPH-NVSC2022US037365

PATIENT
  Age: 47 Year
  Sex: Female

DRUGS (2)
  1. DOCETAXEL [Suspect]
     Active Substance: DOCETAXEL
     Indication: Uterine leiomyosarcoma
     Dosage: 3 CYCLES
     Route: 041
  2. GEMCITABINE [Suspect]
     Active Substance: GEMCITABINE
     Indication: Uterine leiomyosarcoma
     Dosage: 3 CYCLES
     Route: 041

REACTIONS (4)
  - Uterine leiomyosarcoma [Unknown]
  - Malignant neoplasm progression [Unknown]
  - Orthostatic hypotension [Recovering/Resolving]
  - Product use in unapproved indication [Unknown]
